FAERS Safety Report 7936039-9 (Version None)
Quarter: 2011Q4

REPORT INFORMATION
  Report Type: 
  Country: None (occurrence: None)
  Receive Date: 20111123
  Receipt Date: 20111116
  Transmission Date: 20120403
  Serious: Yes (Disabling)
  Sender: FDA-Public Use
  Company Number: BR-US-EMD SERONO, INC.-7078301

PATIENT
  Sex: Female

DRUGS (1)
  1. REBIF [Suspect]
     Indication: SECONDARY PROGRESSIVE MULTIPLE SCLEROSIS
     Dates: start: 20110217

REACTIONS (5)
  - MULTIPLE SCLEROSIS [None]
  - WEIGHT INCREASED [None]
  - LOCALISED OEDEMA [None]
  - DECREASED APPETITE [None]
  - DEPRESSION [None]
